FAERS Safety Report 10775071 (Version 1)
Quarter: 2015Q1

REPORT INFORMATION
  Report Type: Spontaneous
  Country: ES (occurrence: ES)
  Receive Date: 20150209
  Receipt Date: 20150209
  Transmission Date: 20150721
  Serious: Yes (Hospitalization)
  Sender: FDA-Public Use
  Company Number: ES-JNJFOC-20150202218

PATIENT
  Age: 78 Year
  Sex: Female

DRUGS (12)
  1. EUTIROX [Concomitant]
     Active Substance: LEVOTHYROXINE SODIUM
     Indication: HYPOTHYROIDISM
     Route: 048
     Dates: start: 201309
  2. COMPLIDERMOL [Suspect]
     Active Substance: DIETARY SUPPLEMENT
     Indication: PRODUCT USED FOR UNKNOWN INDICATION
     Route: 048
     Dates: start: 20140110, end: 20140311
  3. ELONTRIL [Suspect]
     Active Substance: BUPROPION HYDROCHLORIDE
     Indication: PAIN
     Route: 048
     Dates: start: 20140302, end: 20140311
  4. LYRICA [Concomitant]
     Active Substance: PREGABALIN
     Indication: PAIN
     Route: 048
     Dates: start: 2011
  5. PAZITAL [Suspect]
     Active Substance: ACETAMINOPHEN\TRAMADOL HYDROCHLORIDE
     Indication: PAIN
     Route: 048
     Dates: start: 2011, end: 20140314
  6. RISPERIDONE. [Suspect]
     Active Substance: RISPERIDONE
     Indication: PRODUCT USED FOR UNKNOWN INDICATION
     Route: 048
     Dates: start: 20140121, end: 20140314
  7. FLUMIL FORTE [Suspect]
     Active Substance: ACETYLCYSTEINE
     Indication: PRODUCT USED FOR UNKNOWN INDICATION
     Route: 048
     Dates: start: 20140309, end: 20140311
  8. BROMAZEPAM [Concomitant]
     Active Substance: BROMAZEPAM
     Indication: ANXIETY
     Route: 048
     Dates: start: 2011
  9. FLUVASTATIN [Suspect]
     Active Substance: FLUVASTATIN SODIUM
     Indication: DYSLIPIDAEMIA
     Route: 048
     Dates: start: 201309, end: 20140314
  10. ACUTIL FOSFORO [Suspect]
     Active Substance: DIETARY SUPPLEMENT
     Indication: HYPOVITAMINOSIS
     Route: 065
     Dates: start: 2011, end: 20140314
  11. OMEPRAZOLE. [Suspect]
     Active Substance: OMEPRAZOLE
     Indication: PROPHYLAXIS AGAINST GASTROINTESTINAL ULCER
     Route: 048
     Dates: start: 2011
  12. SERTRALINE [Suspect]
     Active Substance: SERTRALINE HYDROCHLORIDE
     Indication: DEPRESSION
     Route: 048
     Dates: start: 2011, end: 20140314

REACTIONS (1)
  - Hepatitis [Recovering/Resolving]

NARRATIVE: CASE EVENT DATE: 20140311
